FAERS Safety Report 10504332 (Version 1)
Quarter: 2014Q4

REPORT INFORMATION
  Report Type: Spontaneous
  Country: JP (occurrence: None)
  Receive Date: 20141003
  Receipt Date: 20141003
  Transmission Date: 20150528
  Serious: Yes (Other)
  Sender: FDA-Public Use
  Company Number: INT_00426_2014

PATIENT
  Age: 79 Year
  Sex: Male

DRUGS (3)
  1. ETOPOSIDE. [Suspect]
     Active Substance: ETOPOSIDE
     Indication: SMALL CELL LUNG CANCER
     Dosage: (80 MG/M2, [ON DAYS 1 - 3 OF A 28 DAY CYCLE, AT LEAST ONE CYCLE])
  2. RADIOTHERAPY [Suspect]
     Active Substance: RADIATION THERAPY
     Indication: SMALL CELL LUNG CANCER
     Dosage: ([7.5 GY FOR 5 FRACTIONS])
  3. CISPLATIN. [Suspect]
     Active Substance: CISPLATIN
     Indication: SMALL CELL LUNG CANCER
     Dosage: (25 MG/M2, [ON DAYS 1 - 3 OF A 28 DAY CYCLE, AT LEAST ONE CYCLE])

REACTIONS (4)
  - Toxicity to various agents [None]
  - Large intestine perforation [None]
  - Neutropenia [None]
  - Leukopenia [None]
